FAERS Safety Report 12127419 (Version 1)
Quarter: 2016Q1

REPORT INFORMATION
  Report Type: Spontaneous
  Country: IE (occurrence: IE)
  Receive Date: 20160229
  Receipt Date: 20160229
  Transmission Date: 20160526
  Serious: Yes (Other)
  Sender: FDA-Public Use
  Company Number: IE-WATSON-2016-03943

PATIENT
  Age: 77 Year
  Sex: Male

DRUGS (5)
  1. NUPRIN [Suspect]
     Active Substance: IBUPROFEN
     Indication: ANTIPLATELET THERAPY
     Dosage: 75 MG, UNK
     Route: 065
  2. ELIQUIS [Suspect]
     Active Substance: APIXABAN
     Indication: ATRIAL FIBRILLATION
  3. ELIQUIS [Suspect]
     Active Substance: APIXABAN
     Indication: CEREBROVASCULAR ACCIDENT PROPHYLAXIS
     Dosage: 5 MG, DAILY
     Route: 048
     Dates: start: 20150318
  4. CITALOPRAM [Suspect]
     Active Substance: CITALOPRAM HYDROBROMIDE
     Indication: DEPRESSED MOOD
     Dosage: 10 MG, DAILY
     Route: 048
     Dates: start: 20150331
  5. ELIQUIS [Suspect]
     Active Substance: APIXABAN
     Indication: OFF LABEL USE

REACTIONS (2)
  - Off label use [Unknown]
  - Epistaxis [Recovered/Resolved]

NARRATIVE: CASE EVENT DATE: 20150418
